FAERS Safety Report 9379036 (Version 1)
Quarter: 2013Q2

REPORT INFORMATION
  Report Type: Spontaneous
  Country: IN (occurrence: None)
  Receive Date: 20130522
  Receipt Date: 20130522
  Transmission Date: 20140414
  Serious: Yes (Death)
  Sender: FDA-Public Use
  Company Number: FK201301611

PATIENT
  Age: 16 Year
  Sex: Female

DRUGS (2)
  1. METHOTREXATE [Suspect]
     Indication: NON-HODGKIN^S LYMPHOMA
  2. FOLINIC ACID (FOLINIC ACID)(FOLINIC ACID) [Concomitant]

REACTIONS (5)
  - Toxic epidermal necrolysis [None]
  - Bone marrow failure [None]
  - Sepsis [None]
  - Multi-organ disorder [None]
  - Multi-organ failure [None]
